FAERS Safety Report 10457082 (Version 1)
Quarter: 2014Q3

REPORT INFORMATION
  Report Type: Spontaneous
  Country: US (occurrence: None)
  Receive Date: 20140902
  Receipt Date: 20140902
  Transmission Date: 20150326
  Serious: Yes (Other)
  Sender: FDA-Public Use
  Company Number: 201406091

PATIENT
  Age: 65 Year
  Sex: Male

DRUGS (1)
  1. XIAFLEX [Suspect]
     Active Substance: COLLAGENASE CLOSTRIDIUM HISTOLYTICUM
     Indication: PEYRONIE^S DISEASE
     Dosage: INTRALESIONAL ?
     Route: 050
     Dates: start: 20140402, end: 20140404

REACTIONS (2)
  - Penile haematoma [None]
  - Penile swelling [None]

NARRATIVE: CASE EVENT DATE: 20140522
